FAERS Safety Report 13921431 (Version 2)
Quarter: 2017Q3

REPORT INFORMATION
  Report Type: Report from Study
  Country: US (occurrence: US)
  Receive Date: 20170830
  Receipt Date: 20170926
  Transmission Date: 20171127
  Serious: Yes (Hospitalization, Other)
  Sender: FDA-Public Use
  Company Number: US-BAYER-2016-224453

PATIENT
  Age: 82 Year
  Sex: Female
  Weight: 92.06 kg

DRUGS (10)
  1. ADEMPAS [Suspect]
     Active Substance: RIOCIGUAT
     Indication: PULMONARY ARTERIAL HYPERTENSION
     Dosage: 2.5 MG, TID
     Route: 048
     Dates: start: 20170206
  2. ADEMPAS [Suspect]
     Active Substance: RIOCIGUAT
     Indication: PULMONARY ARTERIAL HYPERTENSION
     Dosage: 2.5 MG, TID
     Route: 048
  3. ADEMPAS [Suspect]
     Active Substance: RIOCIGUAT
     Indication: PULMONARY ARTERIAL HYPERTENSION
     Dosage: 2.5 MG, TID
     Route: 048
  4. WARFARIN [Concomitant]
     Active Substance: WARFARIN
  5. ADEMPAS [Suspect]
     Active Substance: RIOCIGUAT
     Indication: PULMONARY ARTERIAL HYPERTENSION
     Dosage: UNK
     Dates: start: 20160721
  6. ADEMPAS [Suspect]
     Active Substance: RIOCIGUAT
     Indication: PULMONARY ARTERIAL HYPERTENSION
     Dosage: UNK
     Dates: start: 20170206
  7. ADEMPAS [Suspect]
     Active Substance: RIOCIGUAT
     Indication: PULMONARY ARTERIAL HYPERTENSION
     Dosage: 2.5 MG, TID
     Route: 048
  8. ADEMPAS [Suspect]
     Active Substance: RIOCIGUAT
     Indication: PULMONARY ARTERIAL HYPERTENSION
     Dosage: 2.5 MG, TID
     Route: 048
  9. ADEMPAS [Suspect]
     Active Substance: RIOCIGUAT
     Indication: PULMONARY ARTERIAL HYPERTENSION
     Dosage: 2 MG, TID
     Route: 048
  10. OPSUMIT [Concomitant]
     Active Substance: MACITENTAN
     Dosage: UNK

REACTIONS (14)
  - Atrial fibrillation [Unknown]
  - Heart rate irregular [Unknown]
  - Hospitalisation [Unknown]
  - Cough [Unknown]
  - Cardiac failure congestive [Recovering/Resolving]
  - Lung carcinoma cell type unspecified stage IV [Unknown]
  - Fatigue [None]
  - Pneumonia [Recovering/Resolving]
  - Dizziness [Unknown]
  - Pulmonary hypertension [Unknown]
  - Cardioversion [None]
  - Blood potassium decreased [Unknown]
  - Weight decreased [Unknown]
  - Dyspnoea [Not Recovered/Not Resolved]

NARRATIVE: CASE EVENT DATE: 2017
